FAERS Safety Report 5893366-7 (Version None)
Quarter: 2008Q3

REPORT INFORMATION
  Report Type: 
  Country: None (occurrence: None)
  Receive Date: 20080922
  Receipt Date: 20080922
  Transmission Date: 20090109
  Serious: No
  Sender: FDA-Public Use
  Company Number: None

PATIENT
  Age: 61 Year
  Sex: Female
  Weight: 63.05 kg

DRUGS (1)
  1. BENZALKONIUM CHLORIDE TOWELETTE AEROMED [Suspect]
     Dosage: 1 TOWELETTE
     Dates: start: 20080909, end: 20080909

REACTIONS (2)
  - BURNING SENSATION [None]
  - POLLAKIURIA [None]
